FAERS Safety Report 8345050-8 (Version None)
Quarter: 2012Q2

REPORT INFORMATION
  Report Type: 
  Country: None (occurrence: None)
  Receive Date: 20120508
  Receipt Date: 20120427
  Transmission Date: 20120825
  Serious: Yes (Hospitalization, Other)
  Sender: FDA-Public Use
  Company Number: US-ACTELION-A-US2011-51062

PATIENT

DRUGS (5)
  1. POTASSIUM CHLORIDE [Concomitant]
  2. AMIODARONE HCL [Suspect]
     Dosage: UNK
     Dates: end: 20110601
  3. COUMADIN [Concomitant]
  4. TRACLEER [Suspect]
     Indication: PULMONARY HYPERTENSION
     Dosage: UNK
     Route: 048
     Dates: start: 20040409
  5. CALCIUM CHANNEL BLOCKERS [Concomitant]

REACTIONS (10)
  - PRURITUS [None]
  - DRUG HYPERSENSITIVITY [None]
  - BLOOD PARATHYROID HORMONE INCREASED [None]
  - DRY SKIN [None]
  - SKIN EXFOLIATION [None]
  - ATRIAL FIBRILLATION [None]
  - CHEST PAIN [None]
  - ONYCHOCLASIS [None]
  - CARDIOVERSION [None]
  - DYSPNOEA [None]
